FAERS Safety Report 6474503-2 (Version None)
Quarter: 2009Q4

REPORT INFORMATION
  Report Type: 
  Country: None (occurrence: None)
  Receive Date: 20091204
  Receipt Date: 20091124
  Transmission Date: 20100525
  Serious: Yes (Death, Life-Threatening, Hospitalization, Disabling)
  Sender: FDA-Public Use
  Company Number: AU-JNJFOC-20070704021

PATIENT
  Sex: Male
  Weight: 120 kg

DRUGS (4)
  1. REMICADE [Suspect]
     Indication: CROHN'S DISEASE
     Dosage: 3 INFUSIONS
     Route: 042
  2. AZATHIOPRINE [Suspect]
  3. AZATHIOPRINE [Suspect]
     Indication: CROHN'S DISEASE
     Dosage: 2-2.5 MG/KG
  4. PREDNISOLONE [Suspect]
     Indication: CROHN'S DISEASE
     Dosage: VARYING DOSES

REACTIONS (2)
  - HEPATOSPLENIC T-CELL LYMPHOMA [None]
  - STAPHYLOCOCCAL SEPSIS [None]
